FAERS Safety Report 11486284 (Version 1)
Quarter: 2015Q3

REPORT INFORMATION
  Report Type: Spontaneous
  Country: US (occurrence: US)
  Receive Date: 20150910
  Receipt Date: 20150910
  Transmission Date: 20151125
  Serious: No
  Sender: FDA-Public Use
  Company Number: US-009507513-1509USA003785

PATIENT
  Age: 23 Year
  Sex: Female
  Weight: 47.62 kg

DRUGS (1)
  1. NUVARING [Suspect]
     Active Substance: ETHINYL ESTRADIOL\ETONOGESTREL
     Indication: CONTRACEPTION
     Dosage: UNKNOWN
     Route: 067
     Dates: start: 201502

REACTIONS (2)
  - Incorrect drug administration duration [Unknown]
  - Menstruation normal [Unknown]

NARRATIVE: CASE EVENT DATE: 20150828
